FAERS Safety Report 10594310 (Version 1)
Quarter: 2014Q4

REPORT INFORMATION
  Report Type: Spontaneous
  Country: CA (occurrence: CA)
  Receive Date: 20141119
  Receipt Date: 20141119
  Transmission Date: 20150529
  Serious: Yes (Other)
  Sender: FDA-Public Use
  Company Number: CA-TEVA-523603USA

PATIENT

DRUGS (1)
  1. JOLESSA [Suspect]
     Active Substance: ETHINYL ESTRADIOL\LEVONORGESTREL
     Dosage: 0.15 MG / 0.03 MG

REACTIONS (2)
  - Product quality issue [Unknown]
  - Haemorrhage [Unknown]
